FAERS Safety Report 14308550 (Version 1)
Quarter: 2017Q4

REPORT INFORMATION
  Report Type: Spontaneous
  Country: RO (occurrence: RO)
  Receive Date: 20171220
  Receipt Date: 20171220
  Transmission Date: 20180321
  Serious: Yes (Other)
  Sender: FDA-Public Use
  Company Number: RO-ROCHE-2042031

PATIENT
  Age: 80 Year
  Sex: Female

DRUGS (4)
  1. CYCLOPHOSPHAMIDE. [Concomitant]
     Active Substance: CYCLOPHOSPHAMIDE
  2. MABTHERA [Suspect]
     Active Substance: RITUXIMAB
     Indication: B-CELL LYMPHOMA
     Route: 042
     Dates: start: 201612, end: 201707
  3. PREDNISONE. [Concomitant]
     Active Substance: PREDNISONE
  4. VINCRISTINE [Suspect]
     Active Substance: VINCRISTINE
     Indication: B-CELL LYMPHOMA
     Route: 065
     Dates: start: 201612, end: 201612

REACTIONS (1)
  - Ileus paralytic [Unknown]

NARRATIVE: CASE EVENT DATE: 201612
